FAERS Safety Report 7817626-5 (Version None)
Quarter: 2011Q4

REPORT INFORMATION
  Report Type: 
  Country: None (occurrence: None)
  Receive Date: 20111017
  Receipt Date: 20111010
  Transmission Date: 20120403
  Serious: Yes (Death, Congenital Anomaly, Other)
  Sender: FDA-Public Use
  Company Number: DE-JNJFOC-20111003452

PATIENT
  Age: 1 Day
  Sex: Male
  Weight: 2.27 kg

DRUGS (3)
  1. DIAZEPAM [Suspect]
     Indication: MATERNAL EXPOSURE DURING PREGNANCY
     Route: 064
     Dates: start: 20101120, end: 20101120
  2. FOLIC ACID [Suspect]
     Indication: MATERNAL EXPOSURE DURING PREGNANCY
     Route: 064
  3. TOPAMAX [Suspect]
     Indication: MATERNAL EXPOSURE DURING PREGNANCY
     Route: 064
     Dates: start: 20100309, end: 20101120

REACTIONS (9)
  - NEONATAL ASPIRATION [None]
  - MATERNAL DRUGS AFFECTING FOETUS [None]
  - DEATH NEONATAL [None]
  - PULMONARY ALVEOLAR HAEMORRHAGE [None]
  - PULMONARY HYPOPLASIA [None]
  - PATENT DUCTUS ARTERIOSUS [None]
  - ATRIAL SEPTAL DEFECT [None]
  - PREMATURE BABY [None]
  - SMALL FOR DATES BABY [None]
